FAERS Safety Report 23225356 (Version 2)
Quarter: 2024Q2

REPORT INFORMATION
  Report Type: Report from Study
  Country: US (occurrence: US)
  Receive Date: 20231124
  Receipt Date: 20240429
  Transmission Date: 20240716
  Serious: Yes (Other)
  Sender: FDA-Public Use
  Company Number: US-JNJFOC-20231156655

PATIENT
  Age: 57 Year
  Sex: Male

DRUGS (1)
  1. ABIRATERONE ACETATE [Suspect]
     Active Substance: ABIRATERONE ACETATE
     Indication: Product used for unknown indication
     Route: 048

REACTIONS (11)
  - Mental impairment [Unknown]
  - Weight decreased [Unknown]
  - Fatigue [Unknown]
  - Decreased appetite [Unknown]
  - Myalgia [Unknown]
  - Musculoskeletal stiffness [Unknown]
  - Diarrhoea [Unknown]
  - Abdominal pain [Unknown]
  - Muscular weakness [Unknown]
  - Amnesia [Unknown]
  - Nervousness [Unknown]
